FAERS Safety Report 9060890 (Version 1)
Quarter: 2013Q1

REPORT INFORMATION
  Report Type: Spontaneous
  Country: US (occurrence: US)
  Receive Date: 20130212
  Receipt Date: 20130212
  Transmission Date: 20140127
  Serious: Yes (Other)
  Sender: FDA-Public Use
  Company Number: US-BRISTOL-MYERS SQUIBB COMPANY-17369331

PATIENT
  Sex: 0

DRUGS (2)
  1. ABILIFY [Suspect]
  2. PAXIL [Suspect]
     Dosage: FORMULATION-PAXIL 20

REACTIONS (1)
  - Serotonin syndrome [Unknown]
